FAERS Safety Report 11622826 (Version 1)
Quarter: 2015Q4

REPORT INFORMATION
  Report Type: Spontaneous
  Country: US (occurrence: US)
  Receive Date: 20151013
  Receipt Date: 20151013
  Transmission Date: 20160304
  Serious: No
  Sender: FDA-Public Use
  Company Number: US-JNJFOC-20141203742

PATIENT
  Sex: Female

DRUGS (4)
  1. DOXYCYCLINE. [Concomitant]
     Active Substance: DOXYCYCLINE
     Indication: SINUSITIS
     Route: 065
  2. PREDNISONE. [Concomitant]
     Active Substance: PREDNISONE
     Indication: SINUSITIS
     Route: 065
  3. XARELTO [Concomitant]
     Active Substance: RIVAROXABAN
     Indication: ATRIAL FIBRILLATION
     Route: 065
  4. TYLENOL [Suspect]
     Active Substance: ACETAMINOPHEN
     Indication: BACK PAIN
     Dosage: FOR A WEEK
     Route: 065

REACTIONS (2)
  - Inappropriate schedule of drug administration [Unknown]
  - Drug effect decreased [Unknown]
